FAERS Safety Report 8163227-1 (Version None)
Quarter: 2012Q1

REPORT INFORMATION
  Report Type: 
  Country: None (occurrence: None)
  Receive Date: 20120224
  Receipt Date: 20110607
  Transmission Date: 20120608
  Serious: No
  Sender: FDA-Public Use
  Company Number: US-PFIZER INC-K201100691

PATIENT
  Age: 78 Year
  Sex: Male
  Weight: 67.12 kg

DRUGS (2)
  1. FLECTOR [Suspect]
     Indication: BACK PAIN
     Dosage: 1 PATCH, QD FOR 12 HOURS
     Route: 061
     Dates: start: 20110501
  2. FLECTOR [Suspect]
     Indication: PAIN IN EXTREMITY

REACTIONS (4)
  - JAUNDICE [None]
  - HEADACHE [None]
  - ASTHENIA [None]
  - FATIGUE [None]
